FAERS Safety Report 7798988-4 (Version None)
Quarter: 2011Q4

REPORT INFORMATION
  Report Type: 
  Country: None (occurrence: None)
  Receive Date: 20111006
  Receipt Date: 20110923
  Transmission Date: 20120403
  Serious: Yes (Hospitalization, Other)
  Sender: FDA-Public Use
  Company Number: US-BAYER-2011-014853

PATIENT
  Age: 39 Year
  Sex: Female
  Weight: 111.11 kg

DRUGS (23)
  1. SIMVASTATIN [Concomitant]
     Indication: HYPERLIPIDAEMIA
     Dosage: 20 MG, HS
     Route: 048
     Dates: start: 20090601
  2. METFORMIN HCL [Concomitant]
     Indication: TYPE 2 DIABETES MELLITUS
     Dosage: 500 MG, BID
     Route: 048
     Dates: start: 20090101
  3. ACARBOSE [Concomitant]
     Indication: POST GASTRIC SURGERY SYNDROME
     Dosage: 100 MG, TID
     Route: 048
     Dates: start: 20091118
  4. DISPERAMINE [Concomitant]
     Dosage: 10 MG, HS
     Route: 048
     Dates: start: 20090916
  5. OXYCODONE HCL AND ACETAMINOPHEN [Concomitant]
     Dosage: UNK
     Dates: start: 20091029
  6. GLIPIZIDE [Concomitant]
     Dosage: 2.5 MG, QD
     Route: 048
     Dates: start: 20090916
  7. GABAPENTIN [Concomitant]
     Dosage: 100 MG, UNK
     Route: 048
     Dates: start: 20091026
  8. VENTOLIN HFA [Concomitant]
     Dosage: UNK UNK, Q4HR
     Route: 048
     Dates: start: 20091103
  9. DEXTROSE [Concomitant]
     Dosage: 5 MG, PRN
     Route: 048
  10. AMITRIPTYLINE HCL [Concomitant]
     Dosage: 10 MG, UNK
     Route: 048
     Dates: start: 20090910
  11. CARISOPRODOL [Concomitant]
     Dosage: 350 MG, UNK
     Dates: start: 20091029
  12. Q-PAP [Concomitant]
     Dosage: 325 MG, UNK
  13. DESIPRAMINE HCL [Concomitant]
  14. DROSPIRENONE AND ETHINYL ESTRADIOL [Suspect]
     Indication: ORAL CONTRACEPTION
     Dosage: UNK
     Dates: start: 20090619, end: 20091123
  15. VITAMIN B-12 [Concomitant]
     Indication: UNEVALUABLE EVENT
     Dosage: 50 ?G, QD
     Dates: start: 20090206
  16. LISINOPRIL [Concomitant]
     Indication: HYPERTENSION
     Dosage: 10 MG, QD
     Route: 048
     Dates: start: 20090114
  17. DROSPIRENONE AND ETHINYL ESTRADIOL [Suspect]
     Indication: UTERINE LEIOMYOMA
  18. LEVOTHYROXINE SODIUM [Concomitant]
     Indication: HYPOTHYROIDISM
     Dosage: 0.1 MG, QD
     Route: 048
     Dates: start: 20090923
  19. MULTI-VITAMIN [Concomitant]
     Indication: UNEVALUABLE EVENT
     Dosage: UNK UNK, QD
     Route: 048
     Dates: start: 20070601
  20. ACYCLOVIR [Concomitant]
     Dosage: 400 MG, TID
     Route: 048
     Dates: start: 20090813
  21. ERGOTAMINE TARTRATE AND CAFFEINE [Concomitant]
     Indication: HEADACHE
     Dosage: UNK UNK, IRR
     Route: 048
     Dates: start: 20090817
  22. ALBUTEROL [Concomitant]
  23. ACARBOSE [Concomitant]
     Indication: TYPE 2 DIABETES MELLITUS

REACTIONS (9)
  - DEEP VEIN THROMBOSIS [None]
  - CHEST PAIN [None]
  - DYSPNOEA [None]
  - PULMONARY EMBOLISM [None]
  - CHOLECYSTECTOMY [None]
  - OEDEMA [None]
  - PAIN [None]
  - BILIARY DYSKINESIA [None]
  - CHOLECYSTITIS CHRONIC [None]
